FAERS Safety Report 18191842 (Version 1)
Quarter: 2020Q3

REPORT INFORMATION
  Report Type: Report from Study
  Country: MX (occurrence: MX)
  Receive Date: 20200825
  Receipt Date: 20200825
  Transmission Date: 20201103
  Serious: Yes (Other)
  Sender: FDA-Public Use
  Company Number: NVSC2019MX014689

PATIENT
  Sex: Female
  Weight: 76 kg

DRUGS (4)
  1. ZESTORETIC [Concomitant]
     Active Substance: HYDROCHLOROTHIAZIDE\LISINOPRIL
     Indication: PRODUCT USED FOR UNKNOWN INDICATION
     Dosage: UNK (NOT INDICATED 20/12.5 MG)
     Route: 048
  2. METOPROLOL. [Concomitant]
     Active Substance: METOPROLOL
     Indication: HYPERTENSION
     Dosage: 1 DF, QD (100 MG)
     Route: 048
     Dates: start: 2001
  3. SIMBRINZA [Suspect]
     Active Substance: BRIMONIDINE TARTRATE\BRINZOLAMIDE
     Indication: OCULAR HYPERTENSION
     Dosage: UNK UNK, BID (1 IN EACH EYE (1% / 0.2%))
     Route: 047
     Dates: start: 201910
  4. REFRESH TEARS [Concomitant]
     Active Substance: CARBOXYMETHYLCELLULOSE SODIUM
     Indication: EYE LUBRICATION THERAPY
     Dosage: UNK (1 IN EACH EYE (0.5%) FOUR TIMES DAILY)
     Route: 047

REACTIONS (6)
  - Syncope [Unknown]
  - Dizziness [Unknown]
  - Headache [Unknown]
  - Glaucoma [Unknown]
  - Cataract [Recovering/Resolving]
  - Thirst [Unknown]
